FAERS Safety Report 8433027-3 (Version None)
Quarter: 2012Q2

REPORT INFORMATION
  Report Type: 
  Country: None (occurrence: None)
  Receive Date: 20120323
  Receipt Date: 20110815
  Transmission Date: 20120825
  Serious: Yes (Other)
  Sender: FDA-Public Use
  Company Number: 163-21880-11071827

PATIENT
  Age: 60 Year
  Sex: Female
  Weight: 83.4619 kg

DRUGS (1)
  1. REVLIMID [Suspect]
     Indication: MULTIPLE MYELOMA
     Dosage: 10 MG, 1 IN 1 D, PO
     Route: 048
     Dates: start: 20110630

REACTIONS (6)
  - FATIGUE [None]
  - VOMITING [None]
  - DIARRHOEA [None]
  - NAUSEA [None]
  - RASH PRURITIC [None]
  - ABDOMINAL PAIN UPPER [None]
